FAERS Safety Report 18434389 (Version 1)
Quarter: 2020Q4

REPORT INFORMATION
  Report Type: Spontaneous
  Country: DE (occurrence: DE)
  Receive Date: 20201027
  Receipt Date: 20201027
  Transmission Date: 20210114
  Serious: No
  Sender: FDA-Public Use
  Company Number: DE-JAZZ-2020-DE-012582

PATIENT
  Age: 47 Year
  Sex: Female

DRUGS (5)
  1. XYREM [Suspect]
     Active Substance: SODIUM OXYBATE
     Indication: NARCOLEPSY
  2. SUNOSI [Suspect]
     Active Substance: SOLRIAMFETOL
     Indication: CATAPLEXY
  3. SUNOSI [Suspect]
     Active Substance: SOLRIAMFETOL
     Indication: SOMNOLENCE
     Dosage: 75 MILLIGRAM, QD
     Dates: start: 202006
  4. SUNOSI [Suspect]
     Active Substance: SOLRIAMFETOL
     Indication: NARCOLEPSY
  5. XYREM [Suspect]
     Active Substance: SODIUM OXYBATE
     Indication: CATAPLEXY

REACTIONS (7)
  - Disturbance in attention [Unknown]
  - Headache [Unknown]
  - Dry mouth [Unknown]
  - Oedema [Unknown]
  - Heart rate increased [Unknown]
  - Decreased appetite [Unknown]
  - Hyperphagia [Unknown]
